FAERS Safety Report 5455877-8 (Version None)
Quarter: 2007Q3

REPORT INFORMATION
  Report Type: 
  Country: None (occurrence: None)
  Receive Date: 20070918
  Receipt Date: 20070228
  Transmission Date: 20080115
  Serious: Yes (Other)
  Sender: FDA-Public Use
  Company Number: US-ASTRAZENECA-2006UW24121

PATIENT
  Sex: Female
  Weight: 96.4 kg

DRUGS (4)
  1. SEROQUEL [Suspect]
     Indication: DEPRESSION
     Dosage: 25-50
     Route: 048
     Dates: start: 19970101, end: 20010101
  2. ABILIFY [Suspect]
  3. ZYPREXA [Suspect]
  4. GEODON [Concomitant]

REACTIONS (2)
  - DIABETES MELLITUS [None]
  - NEUROLEPTIC MALIGNANT SYNDROME [None]
